FAERS Safety Report 21661435 (Version 1)
Quarter: 2022Q4

REPORT INFORMATION
  Report Type: Spontaneous
  Country: CN (occurrence: CN)
  Receive Date: 20221130
  Receipt Date: 20221130
  Transmission Date: 20230113
  Serious: Yes (Other)
  Sender: FDA-Public Use
  Company Number: CN-STRIDES ARCOLAB LIMITED-2022SP016071

PATIENT

DRUGS (2)
  1. AMLODIPINE [Suspect]
     Active Substance: AMLODIPINE BESYLATE
     Indication: Pulmonary arterial hypertension
     Dosage: 0.16 MILLIGRAM/KILOGRAM PER DAY
     Route: 048
  2. DILTIAZEM [Suspect]
     Active Substance: DILTIAZEM
     Indication: Pulmonary arterial hypertension
     Dosage: 10.6 MILLIGRAM/KILOGRAM PER DAY
     Route: 048

REACTIONS (2)
  - Sinus bradycardia [Unknown]
  - Gingival hypertrophy [Unknown]
